FAERS Safety Report 20472486 (Version 1)
Quarter: 2022Q1

REPORT INFORMATION
  Report Type: Spontaneous
  Country: FR (occurrence: FR)
  Receive Date: 20220215
  Receipt Date: 20220215
  Transmission Date: 20220423
  Serious: Yes (Death, Life-Threatening, Hospitalization, Other)
  Sender: FDA-Public Use
  Company Number: None

PATIENT
  Age: 61 Year
  Sex: Male

DRUGS (2)
  1. FLUINDIONE [Interacting]
     Active Substance: FLUINDIONE
     Indication: Congenital hypercoagulation
     Dosage: UNK
     Route: 048
     Dates: end: 20210912
  2. PLAVIX [Interacting]
     Active Substance: CLOPIDOGREL BISULFATE
     Indication: Congenital hypercoagulation
     Dosage: 75 MG, QD
     Route: 048
     Dates: end: 20210912

REACTIONS (1)
  - Cerebral haematoma [Fatal]

NARRATIVE: CASE EVENT DATE: 20210912
